FAERS Safety Report 6385310-3 (Version None)
Quarter: 2009Q4

REPORT INFORMATION
  Report Type: 
  Country: None (occurrence: None)
  Receive Date: 20091002
  Receipt Date: 20080819
  Transmission Date: 20100525
  Serious: No
  Sender: FDA-Public Use
  Company Number: US-ASTRAZENECA-2008UW16966

PATIENT
  Age: 68 Year
  Sex: Female
  Weight: 65.8 kg

DRUGS (3)
  1. ARIMIDEX [Suspect]
     Indication: BREAST CANCER
     Route: 048
  2. LOTREL [Concomitant]
  3. ZYRTEC [Concomitant]

REACTIONS (3)
  - BODY HEIGHT DECREASED [None]
  - DISCOMFORT [None]
  - MUSCULOSKELETAL STIFFNESS [None]
